FAERS Safety Report 6165712-0 (Version None)
Quarter: 2009Q2

REPORT INFORMATION
  Report Type: 
  Country: None (occurrence: None)
  Receive Date: 20090423
  Receipt Date: 20090410
  Transmission Date: 20091009
  Serious: No
  Sender: FDA-Public Use
  Company Number: 2009-192723-NL

PATIENT
  Age: 33 Year
  Sex: Female

DRUGS (2)
  1. ETONORGESTREL (BATCH #: 817740/ 905960) [Suspect]
     Dosage: DF
     Dates: start: 20020401, end: 20050201
  2. ETONORGESTREL (BATCH #: 817740/ 905960) [Suspect]
     Dosage: DF
     Dates: start: 20061016, end: 20061022

REACTIONS (31)
  - ADJUSTMENT DISORDER WITH MIXED ANXIETY AND DEPRESSED MOOD [None]
  - BURNING SENSATION [None]
  - BURSITIS [None]
  - CARPAL TUNNEL SYNDROME [None]
  - COMPLICATION OF DEVICE INSERTION [None]
  - DEVICE BREAKAGE [None]
  - DYSTHYMIC DISORDER [None]
  - ECONOMIC PROBLEM [None]
  - FAMILY STRESS [None]
  - IATROGENIC INJURY [None]
  - IMPAIRED WORK ABILITY [None]
  - IMPLANT SITE HAEMATOMA [None]
  - IMPLANT SITE PAIN [None]
  - INADEQUATE ANALGESIA [None]
  - LOSS OF LIBIDO [None]
  - MAJOR DEPRESSION [None]
  - MASS [None]
  - MOBILITY DECREASED [None]
  - MUSCULOSKELETAL PAIN [None]
  - NERVE INJURY [None]
  - OEDEMA PERIPHERAL [None]
  - PAIN IN EXTREMITY [None]
  - PANIC ATTACK [None]
  - PSYCHOGENIC PAIN DISORDER [None]
  - SELF ESTEEM DECREASED [None]
  - SENSORY DISTURBANCE [None]
  - SOCIAL AVOIDANT BEHAVIOUR [None]
  - SOCIAL FEAR [None]
  - STRESS [None]
  - THROMBOPHLEBITIS SUPERFICIAL [None]
  - WEIGHT INCREASED [None]
